FAERS Safety Report 23504437 (Version 1)
Quarter: 2024Q1

REPORT INFORMATION
  Report Type: Spontaneous
  Country: US (occurrence: US)
  Receive Date: 20240209
  Receipt Date: 20240209
  Transmission Date: 20240410
  Serious: No
  Sender: FDA-Public Use
  Company Number: US-IGSA-BIG0025468

PATIENT
  Sex: Female
  Weight: 72.562 kg

DRUGS (8)
  1. PROLASTIN-C LIQUID [Suspect]
     Active Substance: .ALPHA.1-PROTEINASE INHIBITOR HUMAN
     Indication: Alpha-1 antitrypsin deficiency
     Dosage: 4380 MILLIGRAM, Q.WK.
     Route: 042
     Dates: start: 20180921
  2. AMPHETAMINE [Concomitant]
     Active Substance: AMPHETAMINE
  3. CLONAZEPAM [Concomitant]
     Active Substance: CLONAZEPAM
  4. EFFEXOR [Concomitant]
     Active Substance: VENLAFAXINE HYDROCHLORIDE
  5. INCRUSE ELLIPTA [Concomitant]
     Active Substance: UMECLIDINIUM BROMIDE
  6. LISINOPRIL [Concomitant]
     Active Substance: LISINOPRIL
  7. XANAX [Concomitant]
     Active Substance: ALPRAZOLAM
  8. VIVELLE-DOT [Concomitant]
     Active Substance: ESTRADIOL

REACTIONS (4)
  - Muscle tightness [Recovering/Resolving]
  - Tinnitus [Recovering/Resolving]
  - Headache [Recovering/Resolving]
  - Pain [Recovering/Resolving]
